FAERS Safety Report 5141148-6 (Version None)
Quarter: 2006Q4

REPORT INFORMATION
  Report Type: 
  Country: None (occurrence: None)
  Receive Date: 20061101
  Receipt Date: 20061019
  Transmission Date: 20070319
  Serious: Yes (Hospitalization)
  Sender: FDA-Public Use
  Company Number: PHBS2006IT16439

PATIENT
  Age: 61 Year
  Sex: Female

DRUGS (2)
  1. ZOMETA [Suspect]
     Indication: MULTIPLE MYELOMA
     Dosage: 4 MG, UNK
     Route: 042
     Dates: start: 20060101, end: 20060401
  2. AREDIA [Suspect]
     Dosage: 90 MG, UNK
     Dates: start: 20060101, end: 20060401

REACTIONS (2)
  - BONE DEBRIDEMENT [None]
  - OSTEONECROSIS [None]
